FAERS Safety Report 8312298-8 (Version None)
Quarter: 2012Q2

REPORT INFORMATION
  Report Type: 
  Country: None (occurrence: None)
  Receive Date: 20120425
  Receipt Date: 20120418
  Transmission Date: 20120825
  Serious: Yes (Hospitalization, Other)
  Sender: FDA-Public Use
  Company Number: BR-ROCHE-1030183

PATIENT
  Sex: Female
  Weight: 91 kg

DRUGS (2)
  1. MABTHERA [Suspect]
     Indication: RHEUMATOID ARTHRITIS
     Route: 042
     Dates: start: 20100831
  2. CLONAZEPAM [Concomitant]

REACTIONS (11)
  - SKIN CANCER [None]
  - JOINT SWELLING [None]
  - GASTROOESOPHAGEAL REFLUX DISEASE [None]
  - ULCER [None]
  - PYREXIA [None]
  - WEIGHT INCREASED [None]
  - GAIT DISTURBANCE [None]
  - OEDEMA PERIPHERAL [None]
  - DRUG INEFFECTIVE [None]
  - DIZZINESS [None]
  - SENSATION OF HEAVINESS [None]
